FAERS Safety Report 8938516 (Version 3)
Quarter: 2013Q1

REPORT INFORMATION
  Report Type: Spontaneous
  Country: US (occurrence: US)
  Receive Date: 20121130
  Receipt Date: 20130208
  Transmission Date: 20140127
  Serious: Yes (Hospitalization, Other)
  Sender: FDA-Public Use
  Company Number: US-ASTRAZENECA-2012SE70100

PATIENT
  Age: 75 Year
  Sex: Female

DRUGS (3)
  1. NEXIUM [Suspect]
     Indication: GASTROOESOPHAGEAL REFLUX DISEASE
     Route: 048
  2. COUMADIN [Concomitant]
  3. WARFARIN [Concomitant]

REACTIONS (5)
  - Femur fracture [Unknown]
  - Fall [Unknown]
  - Weight decreased [Unknown]
  - Ulcer [Unknown]
  - Drug dose omission [Unknown]
